FAERS Safety Report 9773495 (Version 1)
Quarter: 2013Q4

REPORT INFORMATION
  Report Type: Spontaneous
  Country: ES (occurrence: ES)
  Receive Date: 20131219
  Receipt Date: 20131219
  Transmission Date: 20140711
  Serious: Yes (Hospitalization)
  Sender: FDA-Public Use
  Company Number: ES-B.I. PHARMACEUTICALS,INC./RIDGEFIELD-2013-BI-42001ES

PATIENT
  Age: 86 Year
  Sex: Female

DRUGS (8)
  1. MIRAPEXIN [Suspect]
     Indication: PARKINSON^S DISEASE
     Dosage: 0.52 MG
     Route: 048
     Dates: start: 201206
  2. HIDROCLOROTIAZIDA [Suspect]
     Indication: HYPERTENSION
     Dosage: 12.5 MG
     Route: 048
     Dates: start: 20130306, end: 20130314
  3. VALSARTAN [Suspect]
     Indication: HYPERTENSION
     Dosage: 360 MG
     Route: 048
     Dates: start: 20130306, end: 20130314
  4. METFORMINA [Concomitant]
     Indication: TYPE 2 DIABETES MELLITUS
     Dosage: 850 MG
     Route: 048
     Dates: start: 2008
  5. LEVEMIR [Concomitant]
     Indication: TYPE 2 DIABETES MELLITUS
     Dosage: 18 U
     Route: 058
     Dates: start: 20121107
  6. PRANDIN [Concomitant]
     Indication: TYPE 2 DIABETES MELLITUS
     Dosage: 6 MG
     Route: 048
     Dates: start: 2008
  7. PREVENCOR [Concomitant]
     Indication: DYSLIPIDAEMIA
     Dosage: 10 MG
     Route: 048
     Dates: start: 2005
  8. SINEMET PLUS [Concomitant]
     Indication: PARKINSON^S DISEASE
     Dosage: 25 / 100 MG
     Route: 048
     Dates: start: 201206

REACTIONS (2)
  - Hyponatraemia [Recovered/Resolved]
  - Metabolic encephalopathy [Recovered/Resolved]
